FAERS Safety Report 5878472-5 (Version None)
Quarter: 2008Q3

REPORT INFORMATION
  Report Type: 
  Country: None (occurrence: None)
  Receive Date: 20080910
  Receipt Date: 20080827
  Transmission Date: 20090109
  Serious: Yes (Other)
  Sender: FDA-Public Use
  Company Number: 236134J08USA

PATIENT
  Age: 47 Year
  Sex: Male

DRUGS (1)
  1. REBIF [Suspect]
     Indication: MULTIPLE SCLEROSIS
     Dosage: 44 MCG, 3 IN 1 WEEKS, SUBCUTANEOUS
     Route: 058
     Dates: start: 20060302

REACTIONS (15)
  - BRUXISM [None]
  - CONVULSION [None]
  - CRYING [None]
  - EYE ROLLING [None]
  - FALL [None]
  - FEELING ABNORMAL [None]
  - HEARING IMPAIRED [None]
  - MEMORY IMPAIRMENT [None]
  - MUSCULOSKELETAL STIFFNESS [None]
  - NECK PAIN [None]
  - PAIN IN EXTREMITY [None]
  - POSTURE ABNORMAL [None]
  - SPEECH DISORDER [None]
  - SYNCOPE [None]
  - TREMOR [None]
